FAERS Safety Report 8614601-8 (Version None)
Quarter: 2012Q3

REPORT INFORMATION
  Report Type: 
  Country: None (occurrence: None)
  Receive Date: 20120809
  Receipt Date: 20120725
  Transmission Date: 20120928
  Serious: Yes (Life-Threatening, Hospitalization, Other)
  Sender: FDA-Public Use
  Company Number: CL-437-2012

PATIENT
  Age: 90 Year
  Sex: Female

DRUGS (6)
  1. ONDANSETRON [Suspect]
     Indication: NAUSEA
     Dosage: 4MG BD ORAL
     Route: 048
     Dates: start: 20120628
  2. METOCLOPRAMIDE [Suspect]
     Indication: NAUSEA
     Dosage: 10MG FOUR TIME DAY ORAL
     Route: 048
     Dates: start: 20120628, end: 20120710
  3. CLONAZEPAM [Suspect]
     Indication: ANALGESIC THERAPY
     Dosage: 125UG ONCE A DAY, ORAL
     Route: 048
     Dates: start: 20120630, end: 20120709
  4. MORPHINE [Suspect]
     Dosage: 5MG TWO HOURLY ORAL
     Route: 048
     Dates: start: 20120628, end: 20120628
  5. OXYCODONE HCL [Suspect]
     Indication: ANALGESIC THERAPY
     Dosage: ORAL
     Route: 048
     Dates: start: 20120628, end: 20120705
  6. MORPHINE [Suspect]
     Dosage: 5MG TWO HOURLY ORAL
     Route: 048
     Dates: start: 20120619, end: 20120620

REACTIONS (4)
  - BLISTER [None]
  - EXCORIATION [None]
  - SKIN EXFOLIATION [None]
  - STEVENS-JOHNSON SYNDROME [None]
